FAERS Safety Report 9814948 (Version 2)
Quarter: 2014Q1

REPORT INFORMATION
  Report Type: Report from Study
  Country: US (occurrence: US)
  Receive Date: 20140113
  Receipt Date: 20140207
  Transmission Date: 20141002
  Serious: Yes (Disabling)
  Sender: FDA-Public Use
  Company Number: US-AMGEN-USACT2014001778

PATIENT
  Age: 62 Year
  Sex: Male

DRUGS (12)
  1. ETANERCEPT [Suspect]
     Indication: RHEUMATOID ARTHRITIS
     Dosage: 50 MG, QWK
     Route: 058
  2. CELECOXIB [Concomitant]
     Indication: RHEUMATOID ARTHRITIS
     Dosage: 200 MG, AS NECESSARY
     Route: 048
     Dates: start: 2008
  3. ULTRACET [Concomitant]
     Indication: RHEUMATOID ARTHRITIS
     Dosage: 37.5 MG, TID
     Route: 048
     Dates: start: 2008, end: 20130530
  4. IBUPROFEN [Concomitant]
     Indication: RHEUMATOID ARTHRITIS
     Dosage: 800 MG, BID
     Route: 048
     Dates: start: 20120905, end: 20130401
  5. IBUPROFEN [Concomitant]
     Dosage: 800 MG, BID
     Route: 048
     Dates: start: 20120925
  6. FOLIC ACID [Concomitant]
     Indication: RHEUMATOID ARTHRITIS
     Dosage: UNK, QD
     Route: 048
     Dates: start: 20090212
  7. REMICADE [Concomitant]
     Indication: RHEUMATOID ARTHRITIS
     Dosage: UNK, QD
     Route: 048
     Dates: start: 20100712, end: 20120914
  8. PREDNISONE [Concomitant]
     Indication: RHEUMATOID ARTHRITIS
     Dosage: 5 MG, BID
     Route: 048
     Dates: start: 20121030, end: 20121103
  9. PREDNISONE [Concomitant]
     Dosage: 5 MG, BID
     Route: 048
     Dates: start: 20121104
  10. DEPO MEDROL [Concomitant]
     Indication: RHEUMATOID ARTHRITIS
     Dosage: 120 MG, ONE TIME DOSE (SINGLE DOSE)
     Route: 030
     Dates: start: 20121107, end: 20121107
  11. TRAZODONE [Concomitant]
     Indication: INSOMNIA
     Dosage: UNK, QD
     Route: 048
     Dates: start: 20121212
  12. KEFLEX                             /00145501/ [Concomitant]
     Indication: TOOTH ABSCESS
     Dosage: 500 MG, TID
     Route: 048
     Dates: start: 20130701, end: 20130703

REACTIONS (1)
  - Balance disorder [Not Recovered/Not Resolved]
